FAERS Safety Report 15725935 (Version 2)
Quarter: 2018Q4

REPORT INFORMATION
  Report Type: Report from Study
  Country: None (occurrence: NL)
  Receive Date: 20181216
  Receipt Date: 20181220
  Transmission Date: 20190205
  Serious: Yes (Hospitalization)
  Sender: FDA-Public Use
  Company Number: NL-SERVIER PHARMACEUTICALS LLC-2060209

PATIENT
  Age: 71 Year
  Sex: Female

DRUGS (11)
  1. MERCAPTOPURINE. [Suspect]
     Active Substance: MERCAPTOPURINE
     Dates: start: 20171030, end: 20171111
  2. METHOTREXATE. [Suspect]
     Active Substance: METHOTREXATE
     Route: 048
     Dates: start: 20170706, end: 20170706
  3. DEXAMETHASONE. [Suspect]
     Active Substance: DEXAMETHASONE
     Route: 037
     Dates: start: 20170706, end: 20170706
  4. PREDNISOLONE. [Suspect]
     Active Substance: PREDNISOLONE
     Dates: start: 20171030, end: 20171105
  5. DOXYCYCLINE. [Concomitant]
     Active Substance: DOXYCYCLINE
  6. CYTARABINE. [Suspect]
     Active Substance: CYTARABINE
     Dates: start: 20170622, end: 20170623
  7. VANCOMYCIN HYDROCHLORIDE. [Concomitant]
     Active Substance: VANCOMYCIN HYDROCHLORIDE
  8. CLINDAMYCIN PALMITATE HYDROCHLORIDE. [Concomitant]
     Active Substance: CLINDAMYCIN PALMITATE HYDROCHLORIDE
  9. METHOTREXATE. [Suspect]
     Active Substance: METHOTREXATE
     Route: 048
     Dates: start: 20171106, end: 20171106
  10. ONCASPAR [Suspect]
     Active Substance: PEGASPARGASE
     Indication: ACUTE LYMPHOCYTIC LEUKAEMIA
     Dates: start: 20170624, end: 20170624
  11. CLOFARABINE. [Suspect]
     Active Substance: CLOFARABINE
     Dates: start: 20170110, end: 20170114

REACTIONS (3)
  - Staphylococcal bacteraemia [Recovered/Resolved]
  - Staphylococcal sepsis [Recovered/Resolved]
  - Febrile neutropenia [Recovered/Resolved]

NARRATIVE: CASE EVENT DATE: 20170710
